FAERS Safety Report 10250694 (Version 1)
Quarter: 2014Q2

REPORT INFORMATION
  Report Type: Report from Study
  Country: US (occurrence: US)
  Receive Date: 20140620
  Receipt Date: 20140620
  Transmission Date: 20141212
  Serious: Yes (Other)
  Sender: FDA-Public Use
  Company Number: US-ACTELION-A-US2014-100553

PATIENT
  Age: 69 Year
  Sex: Female

DRUGS (2)
  1. TRACLEER [Suspect]
     Indication: COR PULMONALE CHRONIC
     Dosage: UNK
     Route: 048
  2. COUMADIN [Concomitant]

REACTIONS (6)
  - Breast cancer [Unknown]
  - Cyst removal [Unknown]
  - Dialysis [Unknown]
  - Arteriovenous fistula operation [Unknown]
  - Asthenia [Unknown]
  - Dizziness [Unknown]
